FAERS Safety Report 9504534 (Version 1)
Quarter: 2013Q1

REPORT INFORMATION
  Report Type: Spontaneous
  Country: US (occurrence: None)
  Receive Date: 20130225
  Receipt Date: 20130225
  Transmission Date: 20140127
  Serious: No
  Sender: FDA-Public Use
  Company Number: 367723

PATIENT
  Age: 71 Year
  Sex: Female

DRUGS (2)
  1. VICTOZA [Suspect]
     Indication: TYPE 2 DIABETES MELLITUS
     Route: 058
     Dates: start: 20121203, end: 20121223
  2. NOVOTWIST 5 MM (32G) (NOVO TWIST) ? [Concomitant]

REACTIONS (4)
  - Dizziness [None]
  - Abdominal pain upper [None]
  - Headache [None]
  - Pain [None]
